FAERS Safety Report 5241606-X (Version None)
Quarter: 2007Q1

REPORT INFORMATION
  Report Type: 
  Country: None (occurrence: None)
  Receive Date: 20070215
  Receipt Date: 20070215
  Transmission Date: 20070707
  Serious: Yes (Life-Threatening)
  Sender: FDA-Public Use
  Company Number: None

PATIENT
  Sex: Female
  Weight: 58.9676 kg

DRUGS (3)
  1. METRONIDAZOLE [Suspect]
     Indication: BACTERIAL INFECTION
     Dosage: 1 TAB    X TWICE DAILY
     Dates: start: 20070212, end: 20070214
  2. METRONIDAZOLE [Suspect]
     Indication: CYSTITIS
     Dosage: 1 TAB    X TWICE DAILY
     Dates: start: 20070212, end: 20070214
  3. METRONIDAZOLE [Suspect]
     Indication: URINARY TRACT INFECTION
     Dosage: 1 TAB    X TWICE DAILY
     Dates: start: 20070212, end: 20070214

REACTIONS (3)
  - DYSPNOEA [None]
  - PYREXIA [None]
  - RASH [None]
